FAERS Safety Report 14758596 (Version 1)
Quarter: 2018Q2

REPORT INFORMATION
  Report Type: Spontaneous
  Country: US (occurrence: US)
  Receive Date: 20180413
  Receipt Date: 20180413
  Transmission Date: 20180711
  Serious: Yes (Hospitalization)
  Sender: FDA-Public Use
  Company Number: US-JNJFOC-20180414273

PATIENT
  Age: 58 Year
  Sex: Male

DRUGS (4)
  1. INVOKANA [Suspect]
     Active Substance: CANAGLIFLOZIN
     Indication: TYPE 2 DIABETES MELLITUS
     Route: 048
     Dates: start: 20140630, end: 20150415
  2. INVOKANA [Suspect]
     Active Substance: CANAGLIFLOZIN
     Indication: TYPE 2 DIABETES MELLITUS
     Dosage: VARIABLE DOSES OF 100 AND 300MG
     Route: 048
     Dates: start: 20160823, end: 20161130
  3. INVOKANA [Suspect]
     Active Substance: CANAGLIFLOZIN
     Indication: TYPE 2 DIABETES MELLITUS
     Route: 048
     Dates: start: 20150415, end: 20160126
  4. INVOKANA [Suspect]
     Active Substance: CANAGLIFLOZIN
     Indication: TYPE 2 DIABETES MELLITUS
     Route: 048
     Dates: start: 20160404, end: 20160721

REACTIONS (5)
  - Toe amputation [Unknown]
  - Diabetic foot [Unknown]
  - Cellulitis [Unknown]
  - Lymphangitis [Recovered/Resolved]
  - Osteomyelitis acute [Unknown]

NARRATIVE: CASE EVENT DATE: 20171005
